FAERS Safety Report 4338224-4 (Version None)
Quarter: 2004Q2

REPORT INFORMATION
  Report Type: 
  Country: None (occurrence: None)
  Receive Date: 20040409
  Receipt Date: 20040329
  Transmission Date: 20050107
  Serious: No
  Sender: FDA-Public Use
  Company Number: 2004AC00061

PATIENT
  Age: 78 Year
  Sex: Male

DRUGS (3)
  1. LIDOCAINE 1% [Suspect]
     Indication: CYSTITIS
     Dosage: 100 ML IB
     Route: 043
  2. EPINEPHRINE [Suspect]
     Indication: CYSTITIS
     Dosage: 2 ML IB
     Route: 043
  3. DEXAMETHASONE [Suspect]
     Indication: CYSTITIS
     Dosage: 10 ML IB
     Route: 043

REACTIONS (9)
  - ARRHYTHMIA [None]
  - ASTHENIA [None]
  - BLOOD GLUCOSE INCREASED [None]
  - BLOOD POTASSIUM DECREASED [None]
  - DIZZINESS [None]
  - DYSARTHRIA [None]
  - HYPOAESTHESIA [None]
  - OVERDOSE [None]
  - TRANSIENT ISCHAEMIC ATTACK [None]
